FAERS Safety Report 9345437 (Version 5)
Quarter: 2013Q3

REPORT INFORMATION
  Report Type: Spontaneous
  Country: US (occurrence: US)
  Receive Date: 20130613
  Receipt Date: 20130821
  Transmission Date: 20140515
  Serious: Yes (Other)
  Sender: FDA-Public Use
  Company Number: US-THROMBOGENICS INC.-JET-2013-164

PATIENT
  Sex: 0

DRUGS (4)
  1. JETREA [Suspect]
     Indication: VITREOUS ADHESIONS
     Dosage: 0.125 MG, ONE TIME DOSE
     Route: 031
     Dates: start: 20130528, end: 20130528
  2. JETREA [Suspect]
     Indication: MACULAR HOLE
  3. DETROL [Concomitant]
     Indication: URINARY INCONTINENCE
     Dosage: UNK
     Dates: start: 20110105
  4. CLARITIN                           /00917501/ [Concomitant]
     Indication: SEASONAL ALLERGY
     Dosage: UNK

REACTIONS (12)
  - Blindness transient [Recovered/Resolved]
  - Macular hole [Not Recovered/Not Resolved]
  - Headache [Not Recovered/Not Resolved]
  - Chromatopsia [Recovering/Resolving]
  - Visual impairment [Recovering/Resolving]
  - Vision blurred [Not Recovered/Not Resolved]
  - Ocular discomfort [Not Recovered/Not Resolved]
  - Metamorphopsia [Not Recovered/Not Resolved]
  - Vitreous floaters [Not Recovered/Not Resolved]
  - Facial pain [Not Recovered/Not Resolved]
  - Disease progression [Unknown]
  - Off label use [Unknown]
